FAERS Safety Report 16771809 (Version 3)
Quarter: 2019Q3

REPORT INFORMATION
  Report Type: Spontaneous
  Country: US (occurrence: US)
  Receive Date: 20190904
  Receipt Date: 20190923
  Transmission Date: 20191005
  Serious: Yes (Other)
  Sender: FDA-Public Use
  Company Number: US-PFIZER INC-2019363856

PATIENT
  Age: 45 Year
  Sex: Male
  Weight: 100 kg

DRUGS (12)
  1. PRISTIQ EXTENDED-RELEASE [Concomitant]
     Active Substance: DESVENLAFAXINE SUCCINATE
     Indication: ANXIETY
     Dosage: 75 MG, 1X/DAY [75 MG, TABLET, ONCE A DAY]
  2. CELEBREX [Suspect]
     Active Substance: CELECOXIB
     Dosage: 200 MG, ALTERNATE DAY
     Dates: start: 2019
  3. PRISTIQ EXTENDED-RELEASE [Concomitant]
     Active Substance: DESVENLAFAXINE SUCCINATE
     Indication: DEPRESSION
     Dosage: 75 MG, 1X/DAY (50MG IN MORNING AND 25MG AT NIGHT)
     Dates: start: 2019
  4. LIDOCAINE. [Concomitant]
     Active Substance: LIDOCAINE
     Indication: PAIN
     Dosage: UNK
  5. CADUET [Concomitant]
     Active Substance: AMLODIPINE BESYLATE\ATORVASTATIN CALCIUM
     Dosage: UNK
  6. WARFARIN [Concomitant]
     Active Substance: WARFARIN
     Indication: THROMBOSIS
     Dosage: 7.5 MG, 1X/DAY
  7. BYSTOLIC [Concomitant]
     Active Substance: NEBIVOLOL HYDROCHLORIDE
     Indication: HYPERTENSION
     Dosage: 5 MG, 1X/DAY
  8. CELEBREX [Suspect]
     Active Substance: CELECOXIB
     Indication: PAIN
     Dosage: 200 MG, 2X/DAY [200 MG, TWO A DAY, ORAL]
     Route: 048
  9. CELEBREX [Suspect]
     Active Substance: CELECOXIB
     Indication: MUSCULOSKELETAL DISORDER
     Dosage: 100 MG, 1X/DAY
  10. CELEBREX [Suspect]
     Active Substance: CELECOXIB
     Indication: ARTHRITIS
     Dosage: 100 MG, 2X/DAY
  11. CELEBREX [Suspect]
     Active Substance: CELECOXIB
     Indication: ARTHRITIS
     Dosage: 400 MG, 1X/DAY (TAKING 2 CAPSULES PER DAY)
     Dates: start: 20190820, end: 2019
  12. CELEBREX [Suspect]
     Active Substance: CELECOXIB
     Dosage: 200 MG, 1X/DAY
     Dates: start: 2019, end: 2019

REACTIONS (8)
  - Nerve injury [Unknown]
  - Blast injury [Unknown]
  - Intentional dose omission [Unknown]
  - Lower limb fracture [Unknown]
  - Head injury [Unknown]
  - Weight decreased [Unknown]
  - Skeletal injury [Unknown]
  - Spinal fracture [Unknown]

NARRATIVE: CASE EVENT DATE: 19900402
